FAERS Safety Report 4751698-X (Version None)
Quarter: 2005Q3

REPORT INFORMATION
  Report Type: 
  Country: None (occurrence: None)
  Receive Date: 20050822
  Receipt Date: 20050822
  Transmission Date: 20060218
  Serious: Yes (Death)
  Sender: FDA-Public Use
  Company Number: None

PATIENT
  Age: 60 Year
  Sex: Male

DRUGS (2)
  1. LEXAPRO [Suspect]
     Indication: ANXIETY
     Dosage: 10 MG 1 X DAILY PO
     Route: 048
     Dates: start: 20050601, end: 20050609
  2. LEXAPRO [Suspect]
     Indication: DEPRESSION
     Dosage: 10 MG 1 X DAILY PO
     Route: 048
     Dates: start: 20050601, end: 20050609

REACTIONS (7)
  - AGITATION [None]
  - BURNING SENSATION [None]
  - COMPLETED SUICIDE [None]
  - GUN SHOT WOUND [None]
  - INSOMNIA [None]
  - RESTLESSNESS [None]
  - THINKING ABNORMAL [None]
